FAERS Safety Report 6504386-3 (Version None)
Quarter: 2009Q4

REPORT INFORMATION
  Report Type: 
  Country: None (occurrence: None)
  Receive Date: 20091217
  Receipt Date: 20091214
  Transmission Date: 20100525
  Serious: Yes (Hospitalization, Congenital Anomaly)
  Sender: FDA-Public Use
  Company Number: US-WATSON-2009-10696

PATIENT
  Age: 38 Year
  Sex: Female

DRUGS (2)
  1. PROPRANOLOL [Suspect]
     Indication: PERFORMANCE FEAR
     Dosage: 1/2TAB (10MG) BEFORE PERFORMANCE AS NEEDED
     Route: 048
     Dates: start: 20091207, end: 20091207
  2. PROPRANOLOL [Suspect]
     Dosage: 1/2TAB (10MG) BEFORE PERFORMANCE AS NEEDED
     Route: 048
     Dates: start: 20090401, end: 20090401

REACTIONS (3)
  - PRECIPITATE LABOUR [None]
  - STILLBIRTH [None]
  - UMBILICAL CORD AROUND NECK [None]
